FAERS Safety Report 7320225-5 (Version None)
Quarter: 2011Q1

REPORT INFORMATION
  Report Type: 
  Country: None (occurrence: None)
  Receive Date: 20110228
  Receipt Date: 20110216
  Transmission Date: 20110831
  Serious: Yes (Other)
  Sender: FDA-Public Use
  Company Number: PHHY2011AU12288

PATIENT
  Sex: Female

DRUGS (2)
  1. ESTALIS SEQUI [Suspect]
     Dosage: 50/250
     Route: 062
  2. ESTALIS SEQUI [Suspect]
     Dosage: 50/140
     Route: 062

REACTIONS (5)
  - FEELING ABNORMAL [None]
  - CANDIDIASIS [None]
  - CYSTITIS [None]
  - BREAST CYST [None]
  - HOT FLUSH [None]
